FAERS Safety Report 16243430 (Version 12)
Quarter: 2021Q4

REPORT INFORMATION
  Report Type: Spontaneous
  Country: IN (occurrence: IN)
  Receive Date: 20190426
  Receipt Date: 20211229
  Transmission Date: 20220303
  Serious: Yes (Death, Other)
  Sender: FDA-Public Use
  Company Number: IN-PFIZER INC-2019128875

PATIENT
  Age: 64 Year
  Sex: Male

DRUGS (10)
  1. SUTENT [Suspect]
     Active Substance: SUNITINIB MALATE
     Indication: Metastatic renal cell carcinoma
     Dosage: 50 MG, CYCLIC (2 WEEKS ON AND 1 WEEK OFF)
     Route: 048
     Dates: start: 20190322, end: 2019
  2. SUTENT [Suspect]
     Active Substance: SUNITINIB MALATE
     Indication: Breast cancer metastatic
     Dosage: 37.5 MG, CYCLIC (2 WEEKS ON AND 1 WEEK OFF FOR 6 WEEKS)
  3. SUTENT [Suspect]
     Active Substance: SUNITINIB MALATE
     Dosage: 50 MG, CYCLIC (2 WEEKS ON AND 1 WEEK OFF)
  4. SUTENT [Suspect]
     Active Substance: SUNITINIB MALATE
     Dosage: 50 MG, 1X/DAY
     Route: 048
     Dates: end: 20211028
  5. SUTENT [Suspect]
     Active Substance: SUNITINIB MALATE
     Dosage: 50 MG, 1X/DAY
     Route: 048
     Dates: end: 20211207
  6. LEVOTHYROXINE [Concomitant]
     Active Substance: LEVOTHYROXINE
     Dosage: 62.5 MG, 1X/DAY
  7. PANTOP-D [Concomitant]
     Dosage: UNK, 1X/DAY FOR 6 WEEKS
  8. DEXORANGE [Concomitant]
     Dosage: UNK, 1X/DAY FOR 6 WEEKS
  9. VITAL-C [Concomitant]
     Dosage: UNK, 1X/DAY
  10. SHELCAL [CALCIUM CARBONATE;COLECALCIFEROL] [Concomitant]
     Dosage: UNK, FOR 6 WEEKS

REACTIONS (9)
  - Myocardial infarction [Fatal]
  - Diabetes mellitus [Unknown]
  - Haematoma [Unknown]
  - Renal function test abnormal [Unknown]
  - Malaise [Unknown]
  - Blood thyroid stimulating hormone increased [Unknown]
  - Full blood count abnormal [Unknown]
  - Blood creatine increased [Unknown]
  - Asthenia [Unknown]

NARRATIVE: CASE EVENT DATE: 20190101
